FAERS Safety Report 21713205 (Version 1)
Quarter: 2022Q4

REPORT INFORMATION
  Report Type: Report from Study
  Country: IT (occurrence: IT)
  Receive Date: 20221212
  Receipt Date: 20221212
  Transmission Date: 20230113
  Serious: Yes (Other)
  Sender: FDA-Public Use
  Company Number: IT-GLAXOSMITHKLINE-IT2022EME183130

PATIENT

DRUGS (1)
  1. DOSTARLIMAB [Suspect]
     Active Substance: DOSTARLIMAB
     Indication: Endometrial cancer
     Dosage: 500 MG, EVERY 3 WEEK FOR THE FIRST 4 CYCLE THEN 1000MG EVERY 6 WEEKS FOR OTHER CYCLE
     Dates: start: 202110

REACTIONS (2)
  - Malignant neoplasm progression [Not Recovered/Not Resolved]
  - Malignant neoplasm oligoprogression [Not Recovered/Not Resolved]

NARRATIVE: CASE EVENT DATE: 20220901
